FAERS Safety Report 14663267 (Version 1)
Quarter: 2018Q1

REPORT INFORMATION
  Report Type: Spontaneous
  Country: US (occurrence: PR)
  Receive Date: 20180315
  Receipt Date: 20180315
  Transmission Date: 20180509
  Serious: Yes (Disabling, Other)
  Sender: FDA-Public Use
  Company Number: None

PATIENT
  Age: 37 Year
  Sex: Female
  Weight: 76.5 kg

DRUGS (2)
  1. PROBIOTICS [Concomitant]
     Active Substance: PROBIOTICS NOS
  2. PENTASA [Suspect]
     Active Substance: MESALAMINE
     Indication: CROHN^S DISEASE
     Dosage: ?          QUANTITY:240 CAPSULE(S);?
     Route: 048
     Dates: start: 20161204, end: 20161208

REACTIONS (4)
  - Haptoglobin abnormal [None]
  - Urobilinogen urine increased [None]
  - Activated partial thromboplastin time prolonged [None]
  - Blood bilirubin unconjugated increased [None]

NARRATIVE: CASE EVENT DATE: 20170224
